FAERS Safety Report 22240462 (Version 1)
Quarter: 2023Q2

REPORT INFORMATION
  Report Type: Spontaneous
  Country: US (occurrence: None)
  Receive Date: 20230421
  Receipt Date: 20230421
  Transmission Date: 20230721
  Serious: Yes (Disabling, Other)
  Sender: FDA-Public Use
  Company Number: None

PATIENT
  Age: 62 Year
  Sex: Female
  Weight: 60.75 kg

DRUGS (15)
  1. PRALUENT [Suspect]
     Active Substance: ALIROCUMAB
     Indication: Blood cholesterol increased
     Dosage: OTHER QUANTITY : 1 INJECTION(S);?OTHER FREQUENCY : EVERY 2 WEEKS;?
     Route: 058
     Dates: end: 20230421
  2. BACLOFEN [Concomitant]
     Active Substance: BACLOFEN
  3. GABENPATIN [Concomitant]
  4. COPAXONE [Concomitant]
     Active Substance: GLATIRAMER ACETATE
  5. ZOLOFT [Concomitant]
     Active Substance: SERTRALINE HYDROCHLORIDE
  6. CLONAZEPAM [Concomitant]
     Active Substance: CLONAZEPAM
  7. CALCIUM [Concomitant]
     Active Substance: CALCIUM
  8. VITAMIN D [Concomitant]
     Active Substance: VITAMIN D NOS
  9. XIIDRA [Concomitant]
     Active Substance: LIFITEGRAST
  10. VITAMINS [Concomitant]
     Active Substance: VITAMINS
  11. VITAMIN A [Concomitant]
     Active Substance: VITAMIN A
  12. E[INVALID] [Concomitant]
  13. VIVELLE-DOT [Concomitant]
     Active Substance: ESTRADIOL
  14. FISH OIL [Concomitant]
     Active Substance: FISH OIL
  15. MAGNESIUM [Concomitant]
     Active Substance: MAGNESIUM

REACTIONS (9)
  - Headache [None]
  - Pain [None]
  - Myalgia [None]
  - Influenza like illness [None]
  - Nasal congestion [None]
  - Fatigue [None]
  - Bedridden [None]
  - Loss of personal independence in daily activities [None]
  - Multiple sclerosis relapse [None]

NARRATIVE: CASE EVENT DATE: 19600906
